FAERS Safety Report 9305591 (Version 4)
Quarter: 2013Q2

REPORT INFORMATION
  Report Type: Spontaneous
  Country: JP (occurrence: JP)
  Receive Date: 20130523
  Receipt Date: 20130613
  Transmission Date: 20140414
  Serious: Yes (Death, Hospitalization, Other)
  Sender: FDA-Public Use
  Company Number: JP-UCBSA-086421

PATIENT
  Age: 70 Year
  Sex: Male

DRUGS (6)
  1. CIMZIA [Suspect]
     Indication: RHEUMATOID ARTHRITIS
     Dosage: 200 MG SYRINGE
     Route: 058
     Dates: start: 20130410, end: 20130410
  2. METOLATE [Suspect]
     Dosage: 6 MG/WEEK
     Route: 048
     Dates: start: 20120915
  3. PREDONINE [Suspect]
     Dosage: DAILY DOSE : 5 MG
     Route: 048
     Dates: start: 20120915
  4. RHEUMATREX [Concomitant]
     Dosage: DAILY DOSE: 6 MG
     Route: 048
     Dates: end: 2013
  5. AZULFIDINE-EN [Concomitant]
     Dosage: DAILY DOSE : 500 MG
     Route: 048
     Dates: start: 20120915
  6. FOLIAMIN [Concomitant]
     Dosage: 5 MG/WEEK
     Route: 048
     Dates: start: 20120915

REACTIONS (2)
  - Pneumonia [Fatal]
  - Acute respiratory distress syndrome [Fatal]
